FAERS Safety Report 5951476-X (Version None)
Quarter: 2008Q4

REPORT INFORMATION
  Report Type: 
  Country: None (occurrence: None)
  Receive Date: 20081110
  Receipt Date: 20081030
  Transmission Date: 20090506
  Serious: Yes (Other)
  Sender: FDA-Public Use
  Company Number: 2008AP001096

PATIENT
  Age: 51 Year
  Sex: Female

DRUGS (2)
  1. VALPROATE SODIUM [Suspect]
     Indication: EPILEPSY
     Dosage: 150 MG;BID
     Route: 048
     Dates: start: 20070101
  2. CLONAZEPAM [Concomitant]

REACTIONS (7)
  - CONSTIPATION [None]
  - GASTROINTESTINAL DISORDER [None]
  - HEAD BANGING [None]
  - MOVEMENT DISORDER [None]
  - MUSCLE RIGIDITY [None]
  - MUSCULOSKELETAL PAIN [None]
  - TREMOR [None]
